FAERS Safety Report 6611615-4 (Version None)
Quarter: 2010Q1

REPORT INFORMATION
  Report Type: 
  Country: None (occurrence: None)
  Receive Date: 20100219
  Receipt Date: 20100203
  Transmission Date: 20100710
  Serious: Yes (Death, Other)
  Sender: FDA-Public Use
  Company Number: AUR-APL-2010-00347

PATIENT
  Age: 3 Month
  Sex: Male
  Weight: 3.2 kg

DRUGS (3)
  1. ZIDOVUDINE [Suspect]
     Dosage: , TRANSPLACENT
     Route: 064
  2. LAMIVUDINE [Suspect]
     Dosage: TRANSPLACENT
     Route: 064
  3. KALETRA [Suspect]
     Indication: HIV INFECTION
     Dosage: 2 CAPSULE-BID, TRANSPLACENTAL
     Route: 064

REACTIONS (1)
  - MATERNAL DRUGS AFFECTING FOETUS [None]
